FAERS Safety Report 16657808 (Version 1)
Quarter: 2019Q3

REPORT INFORMATION
  Report Type: Report from Study
  Country: AU (occurrence: AU)
  Receive Date: 20190801
  Receipt Date: 20190801
  Transmission Date: 20191004
  Serious: Yes (Other)
  Sender: FDA-Public Use
  Company Number: AU-JNJFOC-20190737268

PATIENT
  Age: 59 Year
  Sex: Male

DRUGS (1)
  1. REMICADE [Suspect]
     Active Substance: INFLIXIMAB
     Indication: PSORIATIC ARTHROPATHY
     Route: 042
     Dates: start: 201902

REACTIONS (7)
  - Dry mouth [Unknown]
  - Muscular weakness [Unknown]
  - Tinnitus [Unknown]
  - Alopecia [Unknown]
  - Fatigue [Unknown]
  - Neoplasm malignant [Unknown]
  - Arthralgia [Unknown]

NARRATIVE: CASE EVENT DATE: 2019
